FAERS Safety Report 21354052 (Version 1)
Quarter: 2022Q3

REPORT INFORMATION
  Report Type: Spontaneous
  Country: US (occurrence: None)
  Receive Date: 20220919
  Receipt Date: 20220919
  Transmission Date: 20221027
  Serious: No
  Sender: FDA-Public Use
  Company Number: None

PATIENT
  Age: 60 Year
  Sex: Male
  Weight: 64.86 kg

DRUGS (9)
  1. CAPECITABINE [Suspect]
     Active Substance: CAPECITABINE
     Indication: Gastric cancer
     Dosage: FREQUENCY : TWICE A DAY;?
     Route: 048
  2. DEXAMETHASONE [Concomitant]
  3. HYDROMORPHONE [Concomitant]
  4. ONDANSETRON [Concomitant]
  5. OXYCODONE-ACETAMINOPHEN [Concomitant]
  6. PROCHLORPERAZINE [Concomitant]
  7. PROTONIX [Concomitant]
  8. SUCRALFATE [Concomitant]
  9. TYLENOL [Concomitant]

REACTIONS (1)
  - Disease progression [None]
